FAERS Safety Report 16699656 (Version 1)
Quarter: 2019Q3

REPORT INFORMATION
  Report Type: Report from Study
  Country: JP (occurrence: JP)
  Receive Date: 20190813
  Receipt Date: 20190813
  Transmission Date: 20191004
  Serious: Yes (Other)
  Sender: FDA-Public Use
  Company Number: JP-PFIZER INC-2018244077

PATIENT
  Age: 26 Year
  Sex: Female
  Weight: 63 kg

DRUGS (14)
  1. XELJANZ [Suspect]
     Active Substance: TOFACITINIB CITRATE
     Dosage: 5 MG, 2X/DAY
     Route: 048
     Dates: start: 20160906, end: 20170307
  2. XELJANZ [Suspect]
     Active Substance: TOFACITINIB CITRATE
     Dosage: 5 MG, 1X/DAY
     Route: 048
     Dates: start: 20171226
  3. RHEUMATREX [Suspect]
     Active Substance: METHOTREXATE SODIUM
     Dosage: 6 MG, WEEKLY
     Dates: start: 20170711, end: 20170928
  4. ARAVA [Suspect]
     Active Substance: LEFLUNOMIDE
     Dosage: UNK
     Dates: start: 20170307
  5. XELJANZ [Suspect]
     Active Substance: TOFACITINIB CITRATE
     Dosage: 5 MG, 2X/DAY
     Route: 048
     Dates: start: 20170313, end: 20171225
  6. RHEUMATREX [Suspect]
     Active Substance: METHOTREXATE SODIUM
     Dosage: 8 MG, WEEKLY
     Dates: end: 20160825
  7. RHEUMATREX [Suspect]
     Active Substance: METHOTREXATE SODIUM
     Dosage: 2 MG, WEEKLY
     Dates: start: 20180620, end: 20180815
  8. CELECOX [Concomitant]
     Active Substance: CELECOXIB
     Route: 048
  9. RHEUMATREX [Suspect]
     Active Substance: METHOTREXATE SODIUM
     Dosage: 10 MG, WEEKLY
     Dates: start: 20161116, end: 20170706
  10. RHEUMATREX [Suspect]
     Active Substance: METHOTREXATE SODIUM
     Dosage: 4 MG, WEEKLY
     Dates: start: 20171004
  11. XELJANZ [Suspect]
     Active Substance: TOFACITINIB CITRATE
     Indication: RHEUMATOID ARTHRITIS
     Dosage: 5 MG, 2X/DAY
     Route: 048
     Dates: start: 20160308, end: 20160828
  12. RHEUMATREX [Suspect]
     Active Substance: METHOTREXATE SODIUM
     Dosage: 8 MG, WEEKLY
     Dates: start: 20160907, end: 20161110
  13. ECABET NA [Concomitant]
     Route: 048
  14. FOLIAMIN [Concomitant]
     Active Substance: FOLIC ACID
     Route: 048

REACTIONS (3)
  - White blood cell count decreased [Recovered/Resolved]
  - Rheumatoid arthritis [Recovering/Resolving]
  - Anaemia [Recovered/Resolved]

NARRATIVE: CASE EVENT DATE: 20170711
